FAERS Safety Report 5091627-5 (Version None)
Quarter: 2006Q3

REPORT INFORMATION
  Report Type: 
  Country: None (occurrence: None)
  Receive Date: 20060824
  Receipt Date: 20060725
  Transmission Date: 20061208
  Serious: No
  Sender: FDA-Public Use
  Company Number: 2006092212

PATIENT
  Age: 76 Year
  Sex: Female

DRUGS (4)
  1. PREDNISOLONE [Suspect]
     Indication: RHEUMATOID ARTHRITIS
     Dosage: 5 MG; ORAL
     Route: 048
  2. ALENDRONATE SODIUM [Suspect]
     Indication: OSTEOPOROSIS
     Dosage: 70 MG (INTERVAL: ONCE A WEEK); ORAL
     Route: 048
  3. HYDROXYCHLOROQUINE SULFATE [Concomitant]
  4. METHOTREXATE [Concomitant]

REACTIONS (15)
  - ABSCESS [None]
  - ACTINOMYCOSIS [None]
  - C-REACTIVE PROTEIN INCREASED [None]
  - HAEMATOCRIT DECREASED [None]
  - HAEMOGLOBIN DECREASED [None]
  - NECROSIS [None]
  - OSTEITIS [None]
  - OSTEOARTHRITIS [None]
  - OSTEOMYELITIS [None]
  - OSTEONECROSIS [None]
  - PAIN IN JAW [None]
  - PLATELET COUNT INCREASED [None]
  - PURULENT DISCHARGE [None]
  - RHEUMATOID ARTHRITIS [None]
  - SWELLING [None]
